FAERS Safety Report 4290621-1 (Version None)
Quarter: 2004Q1

REPORT INFORMATION
  Report Type: 
  Country: None (occurrence: None)
  Receive Date: 20040209
  Receipt Date: 20040126
  Transmission Date: 20041129
  Serious: Yes (Hospitalization)
  Sender: FDA-Public Use
  Company Number: RENA-10703

PATIENT
  Age: 78 Year
  Sex: Male
  Weight: 80 kg

DRUGS (9)
  1. RENAGEL [Suspect]
     Indication: HYPERPHOSPHATAEMIA
     Dosage: 0.8 MG TID PO
     Route: 048
     Dates: start: 20030808, end: 20031023
  2. ALFACALCIDOL [Suspect]
     Indication: HYPOCALCAEMIA
     Dosage: 1 MCG DAILY
     Dates: start: 20030812, end: 20031019
  3. IRBESARTAN [Concomitant]
  4. GLICLAZIDE [Concomitant]
  5. ATENOLOL [Concomitant]
  6. AMLODIPINE [Concomitant]
  7. ASPIRIN [Concomitant]
  8. DOXAZOSIN MESYLATE [Concomitant]
  9. FUROSEMIDE [Concomitant]

REACTIONS (10)
  - BLOOD GLUCOSE INCREASED [None]
  - BLOOD PHOSPHORUS INCREASED [None]
  - CHILLS [None]
  - CONFUSIONAL STATE [None]
  - DYSURIA [None]
  - FALL [None]
  - HYPERCALCAEMIA [None]
  - INFECTION [None]
  - SUPRAPUBIC PAIN [None]
  - VOMITING [None]
